FAERS Safety Report 6083181-6 (Version None)
Quarter: 2009Q1

REPORT INFORMATION
  Report Type: 
  Country: None (occurrence: None)
  Receive Date: 20090213
  Receipt Date: 20090213
  Transmission Date: 20090719
  Serious: Yes (Hospitalization)
  Sender: FDA-Public Use
  Company Number: None

PATIENT
  Age: 42 Year
  Sex: Female

DRUGS (1)
  1. PLAQUENIL [Suspect]

REACTIONS (10)
  - ANURIA [None]
  - DYSPNOEA [None]
  - DYSURIA [None]
  - LETHARGY [None]
  - LEUKOCYTOSIS [None]
  - MENTAL STATUS CHANGES [None]
  - NAUSEA [None]
  - OEDEMA [None]
  - UNRESPONSIVE TO STIMULI [None]
  - VOMITING [None]
